FAERS Safety Report 7329399-3 (Version None)
Quarter: 2011Q1

REPORT INFORMATION
  Report Type: 
  Country: None (occurrence: None)
  Receive Date: 20110218
  Receipt Date: 20110203
  Transmission Date: 20110831
  Serious: Yes (Hospitalization)
  Sender: FDA-Public Use
  Company Number: 2010-4277

PATIENT
  Age: 77 Year
  Sex: Male

DRUGS (11)
  1. PROPRANOLOL [Concomitant]
  2. POLYETHYLENE GLYCOL [Concomitant]
  3. DOMPERIDONE (DOMPERIDONE) [Concomitant]
  4. RIVASTIGMINE TARTRATE [Concomitant]
  5. LEVODOPA/BENSERAZIDE (LEVODOPA W/BENSERAZIDE/) [Concomitant]
  6. TRIMIPRAMINE MALEATE [Suspect]
     Indication: PRODUCT USED FOR UNKNOWN INDICATION
  7. APO-GO (APOMORPHINE HYDROCHLORIDE) (APOMORPHINE [Suspect]
     Indication: PRODUCT USED FOR UNKNOWN INDICATION
     Dosage: 3.0 MG/H AND BOLUS OF 2.0 MG (3.0 MG/H AND BOLUS OF 2.0 MG),SUBCUTANEOUS
     Route: 058
     Dates: start: 20080703
  8. CLOZAPINE [Suspect]
     Indication: PRODUCT USED FOR UNKNOWN INDICATION
     Dosage: 6.5 MG (6.5 MG,1 IN 1 D)
  9. SINEMET [Concomitant]
  10. MELATONIN (MELATONIN) [Concomitant]
  11. BOTULINUM TOXIN TYPE A (BOTULINUM TOXIN TYPE A) [Concomitant]

REACTIONS (21)
  - HALLUCINATION [None]
  - GENERAL PHYSICAL HEALTH DETERIORATION [None]
  - FALL [None]
  - DISEASE PROGRESSION [None]
  - MOOD ALTERED [None]
  - MOTOR DYSFUNCTION [None]
  - DIZZINESS [None]
  - AGGRESSION [None]
  - INSOMNIA [None]
  - CONFUSIONAL STATE [None]
  - SYNCOPE [None]
  - NODULE [None]
  - AKINESIA [None]
  - SLEEP PHASE RHYTHM DISTURBANCE [None]
  - NAUSEA [None]
  - DRUG INEFFECTIVE [None]
  - WALKING AID USER [None]
  - HYPOTONIA [None]
  - SLEEP DISORDER [None]
  - SOMNOLENCE [None]
  - COGNITIVE DISORDER [None]
